APPROVED DRUG PRODUCT: SAPROPTERIN DIHYDROCHLORIDE
Active Ingredient: SAPROPTERIN DIHYDROCHLORIDE
Strength: 100MG
Dosage Form/Route: TABLET;ORAL
Application: A216797 | Product #001 | TE Code: AB
Applicant: AUROBINDO PHARMA LTD
Approved: Jun 9, 2025 | RLD: No | RS: No | Type: RX